FAERS Safety Report 17536181 (Version 1)
Quarter: 2020Q1

REPORT INFORMATION
  Report Type: Other
  Country: DE (occurrence: DE)
  Receive Date: 20200313
  Receipt Date: 20200313
  Transmission Date: 20200409
  Serious: No
  Sender: FDA-Public Use
  Company Number: DE-LUPIN PHARMACEUTICALS INC.-2019-08525

PATIENT
  Age: 62 Year
  Sex: Female

DRUGS (3)
  1. QUETIAPINE FUMARATE EXTENDED-RELEASE TABLETS [Suspect]
     Active Substance: QUETIAPINE FUMARATE
     Dosage: 800 MILLIGRAM, QD
     Route: 048
  2. QUETIAPINE FUMARATE EXTENDED-RELEASE TABLETS [Suspect]
     Active Substance: QUETIAPINE FUMARATE
     Indication: DEPRESSION
     Dosage: 600 MILLIGRAM, QD
     Route: 048
  3. LITHIUM. [Concomitant]
     Active Substance: LITHIUM
     Indication: DEPRESSION
     Dosage: 295 MG, BID (ONE TABLET IN THE MORNING AND ONE IN THE EVENING, 590 MG) START FROM ABOUT 4 YEARS AGO
     Route: 048

REACTIONS (1)
  - Drug level decreased [Not Recovered/Not Resolved]
